FAERS Safety Report 6979747-9 (Version None)
Quarter: 2010Q3

REPORT INFORMATION
  Report Type: 
  Country: None (occurrence: None)
  Receive Date: 20100914
  Receipt Date: 20100907
  Transmission Date: 20110219
  Serious: Yes (Hospitalization)
  Sender: FDA-Public Use
  Company Number: US-BIOGENIDEC-2008BI001496

PATIENT
  Age: 35 Year
  Sex: Female
  Weight: 70 kg

DRUGS (1)
  1. TYSABRI [Suspect]
     Indication: MULTIPLE SCLEROSIS
     Route: 042
     Dates: start: 20071025, end: 20080220

REACTIONS (11)
  - BRONCHITIS [None]
  - EYE INFECTION [None]
  - GASTROENTERITIS [None]
  - OROPHARYNGEAL PAIN [None]
  - PHARYNGITIS STREPTOCOCCAL [None]
  - POLYNEUROPATHY [None]
  - PRURITUS [None]
  - SINUSITIS [None]
  - ULCER [None]
  - URINARY TRACT INFECTION [None]
  - VERTIGO [None]
